FAERS Safety Report 14632416 (Version 4)
Quarter: 2019Q1

REPORT INFORMATION
  Report Type: Spontaneous
  Country: US (occurrence: US)
  Receive Date: 20180313
  Receipt Date: 20190312
  Transmission Date: 20190417
  Serious: Yes (Hospitalization)
  Sender: FDA-Public Use
  Company Number: US-EMD SERONO-9014244

PATIENT
  Sex: Male

DRUGS (1)
  1. BAVENCIO [Suspect]
     Active Substance: AVELUMAB
     Indication: NEUROENDOCRINE CARCINOMA OF THE SKIN

REACTIONS (5)
  - Pyrexia [Unknown]
  - Somnolence [Unknown]
  - Respiratory distress [Unknown]
  - Oxygen saturation decreased [Unknown]
  - Chills [Unknown]
